FAERS Safety Report 15614793 (Version 1)
Quarter: 2018Q4

REPORT INFORMATION
  Report Type: Report from Study
  Country: FR (occurrence: FR)
  Receive Date: 20181113
  Receipt Date: 20181113
  Transmission Date: 20190205
  Serious: Yes (Life-Threatening, Hospitalization)
  Sender: FDA-Public Use
  Company Number: FR-ROCHE-2131176

PATIENT
  Age: 60 Year
  Sex: Male
  Weight: 84 kg

DRUGS (28)
  1. OBINUTUZUMAB. [Suspect]
     Active Substance: OBINUTUZUMAB
     Indication: NON-HODGKIN^S LYMPHOMA
     Dosage: ON DAYS 2, 8, AND 15 OF CYCLE 1 AND ON DAY 1 OF CYCLES 2 THROUGH 8
     Route: 042
     Dates: start: 20180524, end: 20180524
  2. SERETIDE [Concomitant]
     Active Substance: FLUTICASONE PROPIONATE\SALMETEROL XINAFOATE
     Indication: ASTHMA
     Route: 055
  3. FILGRASTIM [Concomitant]
     Active Substance: FILGRASTIM
     Dosage: 30 MU
     Route: 058
     Dates: start: 20181101, end: 20181104
  4. CC-122 [Suspect]
     Active Substance: AVADOMIDE
     Dosage: ON DAY 1 FOR 5 CONSECUTIVE DAYS FOLLOWED BY 2 DAYS OFF STUDY DRUG EVERY 7 DAYS (5/7-DAY SCHEDULE) IN
     Route: 048
     Dates: start: 20180613, end: 20180616
  5. INOTUZUMAB OZOGAMICIN [Suspect]
     Active Substance: INOTUZUMAB OZOGAMICIN
     Indication: NON-HODGKIN^S LYMPHOMA
     Route: 065
  6. FILGRASTIM [Concomitant]
     Active Substance: FILGRASTIM
     Dosage: 30 MU
     Route: 058
     Dates: start: 20180821, end: 20180824
  7. LASILIX [Concomitant]
     Active Substance: FUROSEMIDE
     Route: 048
     Dates: start: 20181107
  8. CC-122 [Suspect]
     Active Substance: AVADOMIDE
     Dosage: ON DAY 1 FOR 5 CONSECUTIVE DAYS FOLLOWED BY 2 DAYS OFF STUDY DRUG EVERY 7 DAYS (5/7-DAY SCHEDULE) IN
     Route: 048
     Dates: start: 20181010, end: 20181031
  9. AVLOCARDYL [Concomitant]
     Active Substance: PROPRANOLOL HYDROCHLORIDE
     Route: 048
     Dates: start: 20180601, end: 20181101
  10. AVLOCARDYL [Concomitant]
     Active Substance: PROPRANOLOL HYDROCHLORIDE
     Route: 048
     Dates: start: 20181105
  11. ALDACTONE [Concomitant]
     Active Substance: SPIRONOLACTONE
     Indication: ASCITES
     Route: 048
     Dates: start: 20180604, end: 20180612
  12. PARACETAMOL [Concomitant]
     Active Substance: ACETAMINOPHEN
     Indication: PREMEDICATION
     Route: 048
     Dates: start: 20180524
  13. FILGRASTIM [Concomitant]
     Active Substance: FILGRASTIM
     Dosage: 30 MU
     Route: 058
     Dates: start: 20180817, end: 20180818
  14. OBINUTUZUMAB. [Suspect]
     Active Substance: OBINUTUZUMAB
     Dosage: ON DAYS 2, 8, AND 15 OF CYCLE 1 AND ON DAY 1 OF CYCLES 2 THROUGH 8
     Route: 042
     Dates: start: 20180620
  15. DIGOXINE [Concomitant]
     Active Substance: DIGOXIN
     Indication: ATRIAL FIBRILLATION
     Route: 048
     Dates: start: 20180528, end: 20180528
  16. NORFLOXACIN [Concomitant]
     Active Substance: NORFLOXACIN
     Indication: INFECTION PROPHYLAXIS
     Route: 048
     Dates: start: 20180530, end: 20180601
  17. POTASSIUM CHLORIDE. [Concomitant]
     Active Substance: POTASSIUM CHLORIDE
     Indication: PROPHYLAXIS
     Route: 048
     Dates: start: 20181105
  18. CC-122 [Suspect]
     Active Substance: AVADOMIDE
     Indication: NON-HODGKIN^S LYMPHOMA
     Dosage: ON DAY 1 FOR 5 CONSECUTIVE DAYS FOLLOWED BY 2 DAYS OFF STUDY DRUG EVERY 7 DAYS (5/7-DAY SCHEDULE) IN
     Route: 048
     Dates: start: 20180523, end: 20180525
  19. METHYLPREDNISOLONE. [Concomitant]
     Active Substance: METHYLPREDNISOLONE
     Indication: PREMEDICATION
     Route: 042
     Dates: start: 20180524
  20. VALACICLOVIR [Concomitant]
     Active Substance: VALACYCLOVIR HYDROCHLORIDE
     Indication: PROPHYLAXIS
     Route: 048
     Dates: start: 20161003
  21. FILGRASTIM [Concomitant]
     Active Substance: FILGRASTIM
     Dosage: 30 MU
     Route: 058
     Dates: start: 20180924, end: 20180925
  22. LASILIX [Concomitant]
     Active Substance: FUROSEMIDE
     Indication: ATRIAL FIBRILLATION
     Route: 048
     Dates: start: 20181105, end: 20181105
  23. OBINUTUZUMAB. [Suspect]
     Active Substance: OBINUTUZUMAB
     Dosage: CYCLE 6 DAY 1?DRUG INTERRUPTED ON 31/OCT/2018
     Route: 042
     Dates: start: 20181009, end: 20181009
  24. ALDACTONE [Concomitant]
     Active Substance: SPIRONOLACTONE
     Indication: OEDEMA PERIPHERAL
  25. POLARAMINE [Concomitant]
     Active Substance: DEXCHLORPHENIRAMINE MALEATE
     Indication: PREMEDICATION
     Route: 042
     Dates: start: 20180524
  26. BACTRIM [Concomitant]
     Active Substance: SULFAMETHOXAZOLE\TRIMETHOPRIM
     Indication: INFECTION PROPHYLAXIS
     Route: 048
     Dates: start: 20161003
  27. BISOPROLOL [Concomitant]
     Active Substance: BISOPROLOL
     Indication: ATRIAL FIBRILLATION
     Route: 048
     Dates: start: 20181105, end: 20181105
  28. AVLOCARDYL [Concomitant]
     Active Substance: PROPRANOLOL HYDROCHLORIDE
     Indication: PORTAL HYPERTENSION
     Route: 048
     Dates: end: 20180528

REACTIONS (4)
  - Oesophageal varices haemorrhage [Recovered/Resolved]
  - Sepsis [Recovered/Resolved]
  - Escherichia sepsis [Recovered/Resolved]
  - Pyrexia [Recovered/Resolved]

NARRATIVE: CASE EVENT DATE: 20180526
